FAERS Safety Report 10619900 (Version 2)
Quarter: 2014Q4

REPORT INFORMATION
  Report Type: Report from Study
  Country: GR (occurrence: GR)
  Receive Date: 20141202
  Receipt Date: 20141211
  Transmission Date: 20150529
  Serious: Yes (Other)
  Sender: FDA-Public Use
  Company Number: PHHO2014GR015861

PATIENT
  Age: 56 Year
  Sex: Male
  Weight: 67 kg

DRUGS (3)
  1. AFINITOR [Suspect]
     Active Substance: EVEROLIMUS
     Indication: NEUROENDOCRINE TUMOUR
     Dosage: 10 MG, QD (EVERYDAY)
     Route: 048
     Dates: start: 20121002, end: 20121029
  2. AFINITOR [Suspect]
     Active Substance: EVEROLIMUS
     Dosage: 5 MG, QD (EVERYDAY)
     Route: 048
     Dates: start: 20121030, end: 20140220
  3. SANDOSTATINE//OCTREOTIDE [Concomitant]
     Indication: PROPHYLAXIS
     Dosage: 30 MG, 1X1
     Route: 042
     Dates: start: 20121002

REACTIONS (1)
  - Blood creatine phosphokinase increased [Recovered/Resolved]

NARRATIVE: CASE EVENT DATE: 20140122
